FAERS Safety Report 7477823-8 (Version None)
Quarter: 2011Q2

REPORT INFORMATION
  Report Type: 
  Country: None (occurrence: None)
  Receive Date: 20110513
  Receipt Date: 20110429
  Transmission Date: 20111010
  Serious: Yes (Hospitalization, Other)
  Sender: FDA-Public Use
  Company Number: US-ELI_LILLY_AND_COMPANY-US201012000655

PATIENT
  Sex: Female

DRUGS (12)
  1. FOLIC ACID [Concomitant]
  2. CELEBREX [Concomitant]
  3. SIMVASTATIN [Concomitant]
  4. METHOTREXATE [Concomitant]
  5. LOVENOX [Concomitant]
  6. MULTI-VITAMIN [Concomitant]
  7. MISOPROSTOL [Concomitant]
  8. PREDNISONE [Concomitant]
  9. FORTEO [Suspect]
     Indication: OSTEOPOROSIS
     Dosage: 20 UG, DAILY (1/D)
     Dates: start: 20100701
  10. FORTEO [Suspect]
     Dosage: 20 UG, QD
  11. COUMADIN [Concomitant]
  12. LEVOXYL [Concomitant]

REACTIONS (4)
  - OPEN WOUND [None]
  - IMPAIRED HEALING [None]
  - DRY SKIN [None]
  - THROMBOSIS [None]
